FAERS Safety Report 4925867-X (Version None)
Quarter: 2006Q1

REPORT INFORMATION
  Report Type: 
  Country: None (occurrence: None)
  Receive Date: 20060228
  Receipt Date: 20050405
  Transmission Date: 20060701
  Serious: No
  Sender: FDA-Public Use
  Company Number: US-GLAXOSMITHKLINE-A0552804A

PATIENT
  Sex: Female

DRUGS (6)
  1. LAMICTAL [Suspect]
     Indication: BIPOLAR DISORDER
     Dosage: 100MG UNKNOWN
     Route: 048
  2. TOPAMAX [Concomitant]
  3. RISPERDAL [Concomitant]
  4. INDOMETHACIN [Concomitant]
  5. SOMA [Concomitant]
  6. PHENOBARBITAL TAB [Concomitant]

REACTIONS (1)
  - LACRIMATION INCREASED [None]
